FAERS Safety Report 6835227-2 (Version None)
Quarter: 2010Q3

REPORT INFORMATION
  Report Type: 
  Country: None (occurrence: None)
  Receive Date: 20100713
  Receipt Date: 20100628
  Transmission Date: 20110219
  Serious: Yes (Other)
  Sender: FDA-Public Use
  Company Number: US-BAYER-201025995NA

PATIENT
  Age: 25 Year
  Sex: Female

DRUGS (1)
  1. MIRENA [Suspect]
     Indication: CONTRACEPTION
     Dosage: FREQUENCY: CONTINUOUS
     Route: 015
     Dates: start: 20071129, end: 20090201

REACTIONS (5)
  - CYST [None]
  - DYSPAREUNIA [None]
  - ECTOPIC PREGNANCY [None]
  - ENDOMETRIOSIS [None]
  - VAGINAL HAEMORRHAGE [None]
